FAERS Safety Report 8578283-6 (Version None)
Quarter: 2012Q3

REPORT INFORMATION
  Report Type: 
  Country: None (occurrence: None)
  Receive Date: 20120808
  Receipt Date: 20120802
  Transmission Date: 20120928
  Serious: Yes (Death, Hospitalization)
  Sender: FDA-Public Use
  Company Number: DE-SANOFI-AVENTIS-2012SA055132

PATIENT
  Age: 83 Year
  Sex: Male
  Weight: 65 kg

DRUGS (9)
  1. NEULASTA [Concomitant]
     Indication: PREMEDICATION
     Dates: start: 20120101, end: 20120101
  2. GRANISETRON [Concomitant]
     Dates: start: 20120101, end: 20120101
  3. CLEMASTINE [Concomitant]
     Indication: PREMEDICATION
     Route: 042
     Dates: start: 20120101, end: 20120101
  4. ZOMETA [Concomitant]
     Indication: PREMEDICATION
     Dates: start: 20120101, end: 20120101
  5. PREDNISOLONE [Concomitant]
     Indication: PREMEDICATION
     Route: 048
     Dates: start: 20120101, end: 20120101
  6. DEXAMETHASONE [Concomitant]
     Indication: PREMEDICATION
     Dates: start: 20120101, end: 20120101
  7. RANITIDINE [Concomitant]
     Indication: PROPHYLAXIS
     Route: 042
     Dates: start: 20120101, end: 20120101
  8. JEVTANA KIT [Suspect]
     Route: 051
     Dates: start: 20120314, end: 20120314
  9. JEVTANA KIT [Suspect]
     Route: 042
     Dates: start: 20120627, end: 20120627

REACTIONS (4)
  - PNEUMONIA [None]
  - BLOOD GLUCOSE ABNORMAL [None]
  - DEATH [None]
  - GENERAL PHYSICAL HEALTH DETERIORATION [None]
